FAERS Safety Report 15665107 (Version 1)
Quarter: 2018Q4

REPORT INFORMATION
  Report Type: Spontaneous
  Country: US (occurrence: US)
  Receive Date: 20181128
  Receipt Date: 20181128
  Transmission Date: 20190205
  Serious: Yes (Disabling, Other)
  Sender: FDA-Public Use
  Company Number: None

PATIENT
  Age: 49 Year
  Sex: Female
  Weight: 82.55 kg

DRUGS (9)
  1. MULTIHANCE [Suspect]
     Active Substance: GADOBENATE DIMEGLUMINE
  2. MULTIVITAMIN [Concomitant]
     Active Substance: VITAMINS
  3. LOPRESSOR [Concomitant]
     Active Substance: METOPROLOL TARTRATE
  4. VITAMIN D3 [Concomitant]
     Active Substance: CHOLECALCIFEROL
  5. METFORMIN [Concomitant]
     Active Substance: METFORMIN HYDROCHLORIDE
  6. PROTONIX [Concomitant]
     Active Substance: PANTOPRAZOLE SODIUM
  7. NEURONTIN [Concomitant]
     Active Substance: GABAPENTIN
  8. TIROSINT [Concomitant]
     Active Substance: LEVOTHYROXINE SODIUM
  9. WELLBUTRIN [Concomitant]
     Active Substance: BUPROPION HYDROCHLORIDE

REACTIONS (7)
  - Gallbladder operation [None]
  - Hypertension [None]
  - Computerised tomogram abnormal [None]
  - Sensory disturbance [None]
  - Skin lesion [None]
  - Delayed recovery from anaesthesia [None]
  - Muscle twitching [None]

NARRATIVE: CASE EVENT DATE: 20180508
